FAERS Safety Report 8599429-X (Version None)
Quarter: 2012Q3

REPORT INFORMATION
  Report Type: 
  Country: None (occurrence: None)
  Receive Date: 20120808
  Receipt Date: 20120808
  Transmission Date: 20120928
  Serious: Yes (Disabling)
  Sender: FDA-Public Use
  Company Number: None

PATIENT
  Age: 69 Year
  Sex: Male
  Weight: 101.1521 kg

DRUGS (1)
  1. FINASTERIDE [Suspect]
     Indication: BENIGN PROSTATIC HYPERPLASIA
     Dosage: ONE 5MG TABLET ONE PER DAY PO
     Route: 048
     Dates: start: 20080901, end: 20120806

REACTIONS (1)
  - LOSS OF LIBIDO [None]
